FAERS Safety Report 8419756-6 (Version None)
Quarter: 2012Q2

REPORT INFORMATION
  Report Type: 
  Country: None (occurrence: None)
  Receive Date: 20120607
  Receipt Date: 20120531
  Transmission Date: 20120825
  Serious: Yes (Other)
  Sender: FDA-Public Use
  Company Number: US-UCBSA-058642

PATIENT
  Sex: Male

DRUGS (2)
  1. LORTAB [Suspect]
     Dosage: UNKNOWN DOSE
  2. BUTRANS [Concomitant]

REACTIONS (2)
  - PROSTATOMEGALY [None]
  - DYSURIA [None]
